FAERS Safety Report 8762120 (Version 1)
Quarter: 2012Q4

REPORT INFORMATION
  Report Type: 
  Country: GB (occurrence: GB)
  Receive Date: 20120830
  Receipt Date: 20120830
  Transmission Date: 20130627
  Serious: Yes (Hospitalization)
  Sender: FDA-Public Use
  Company Number: GB-NOVOPROD-358543

PATIENT
  Age: 58 Year
  Sex: Female
  Weight: 114.6 kg

DRUGS (12)
  1. GLICLAZIDE [Concomitant]
     Indication: DIABETES MELLITUS
     Dosage: UNK
  2. LEVOTHYROXINE [Concomitant]
     Dosage: UNK
  3. METFORMIN [Concomitant]
     Indication: DIABETES MELLITUS
     Dosage: UNK
  4. MONTELUKAST [Concomitant]
     Dosage: UNK
  5. RAMIPRIL [Concomitant]
     Dosage: UNK
  6. SIMVASTATIN [Concomitant]
     Dosage: UNK
  7. SPIRONOLACTONE [Concomitant]
     Dosage: UNK
  8. WARFARIN [Concomitant]
     Dosage: UNK
  9. VICTOZA [Suspect]
     Indication: DIABETES MELLITUS
     Dosage: 1.2 mg, qd
     Route: 058
     Dates: start: 20120514, end: 201208
  10. AMITRIPTYLINE [Concomitant]
     Dosage: UNK
  11. BUMETANIDE [Concomitant]
     Dosage: UNK
  12. CITALOPRAM [Concomitant]
     Dosage: UNK

REACTIONS (1)
  - Cerebral haematoma [Not Recovered/Not Resolved]
